FAERS Safety Report 19743407 (Version 3)
Quarter: 2021Q3

REPORT INFORMATION
  Report Type: Not Available
  Country: CA (occurrence: FR)
  Receive Date: 20210824
  Receipt Date: 20210826
  Transmission Date: 20211014
  Serious: Yes (Death)
  Sender: FDA-Public Use
  Company Number: US-AKORN-163196

PATIENT
  Age: 51 Year
  Sex: Female

DRUGS (1)
  1. MORPHINE SULFATE ORAL SOLUTION [Suspect]
     Active Substance: MORPHINE SULFATE

REACTIONS (1)
  - Death [Fatal]
